FAERS Safety Report 11162271 (Version 1)
Quarter: 2015Q2

REPORT INFORMATION
  Report Type: Spontaneous
  Country: US (occurrence: None)
  Receive Date: 20150603
  Receipt Date: 20150603
  Transmission Date: 20150821
  Serious: No
  Sender: FDA-Public Use
  Company Number: None

PATIENT
  Age: 87 Year
  Sex: Female
  Weight: 82.56 kg

DRUGS (21)
  1. DETROL [Concomitant]
     Active Substance: TOLTERODINE TARTRATE
  2. AMBIEN [Concomitant]
     Active Substance: ZOLPIDEM TARTRATE
  3. AMLODIPINE [Concomitant]
     Active Substance: AMLODIPINE BESYLATE
  4. ASPIRIN. [Concomitant]
     Active Substance: ASPIRIN
  5. CALCIUM + VIT D [Concomitant]
     Active Substance: CALCIUM\VITAMIN D
  6. MAGNESIUM [Concomitant]
     Active Substance: MAGNESIUM
  7. OMEGA-3 ACIDS [Concomitant]
     Active Substance: OMEGA-3 FATTY ACIDS
  8. WELCHOL [Suspect]
     Active Substance: COLESEVELAM HYDROCHLORIDE
     Indication: BLOOD CHOLESTEROL INCREASED
     Dosage: 2 PILLS
     Dates: start: 201503, end: 20150208
  9. VITAMIN C [Concomitant]
     Active Substance: ASCORBIC ACID
  10. GABAPENTIN. [Concomitant]
     Active Substance: GABAPENTIN
  11. MULTIVITAMIN [Concomitant]
     Active Substance: VITAMINS
  12. COENZYME Q10 [Concomitant]
     Active Substance: UBIDECARENONE
  13. FISH OIL [Concomitant]
     Active Substance: FISH OIL
  14. TYLENOL [Concomitant]
     Active Substance: ACETAMINOPHEN
  15. OMEPRAZOLE. [Concomitant]
     Active Substance: OMEPRAZOLE
  16. FUROSEMIDE. [Concomitant]
     Active Substance: FUROSEMIDE
  17. ESCITALOPRAM [Concomitant]
     Active Substance: ESCITALOPRAM OXALATE
  18. PRAVASTATIN [Concomitant]
     Active Substance: PRAVASTATIN\PRAVASTATIN SODIUM
  19. MICARDIS [Concomitant]
     Active Substance: TELMISARTAN
  20. CLARITIN [Concomitant]
     Active Substance: LORATADINE
  21. VIT. SUPER B-12 [Concomitant]

REACTIONS (3)
  - Weight decreased [None]
  - Malaise [None]
  - Decreased appetite [None]

NARRATIVE: CASE EVENT DATE: 201503
